FAERS Safety Report 7230660-1 (Version None)
Quarter: 2011Q1

REPORT INFORMATION
  Report Type: 
  Country: None (occurrence: None)
  Receive Date: 20110118
  Receipt Date: 20110106
  Transmission Date: 20110831
  Serious: Yes (Other)
  Sender: FDA-Public Use
  Company Number: PHHY2009CA28500

PATIENT
  Sex: Female

DRUGS (3)
  1. SANDOSTATIN LAR [Suspect]
     Dosage: 40 MG, BIW
     Route: 030
  2. SANDOSTATIN LAR [Suspect]
     Dosage: 30 MG, BIW
     Route: 030
  3. SANDOSTATIN LAR [Suspect]
     Indication: CARCINOID TUMOUR
     Dosage: 30 MG EVERY 3 WEEKS
     Route: 030
     Dates: start: 20090512

REACTIONS (9)
  - DRUG EFFECT DECREASED [None]
  - COUGH [None]
  - MALAISE [None]
  - DIARRHOEA [None]
  - INJECTION SITE DISCOMFORT [None]
  - VOMITING [None]
  - PNEUMONIA [None]
  - DYSPNOEA [None]
  - NAUSEA [None]
